FAERS Safety Report 15504816 (Version 6)
Quarter: 2020Q1

REPORT INFORMATION
  Report Type: Spontaneous
  Country: US (occurrence: US)
  Receive Date: 20181016
  Receipt Date: 20200213
  Transmission Date: 20200409
  Serious: Yes (Hospitalization)
  Sender: FDA-Public Use
  Company Number: US-SA-2018SA281849

PATIENT
  Age: 59 Year
  Sex: Female

DRUGS (5)
  1. VITAMINS NOS [Concomitant]
     Active Substance: VITAMINS
  2. PRALUENT [Suspect]
     Active Substance: ALIROCUMAB
     Indication: TYPE V HYPERLIPIDAEMIA
     Dosage: 75 MG, QOW
     Route: 058
     Dates: start: 20170125
  3. CRESTOR [Concomitant]
     Active Substance: ROSUVASTATIN CALCIUM
  4. NAPROSYN [Concomitant]
     Active Substance: NAPROXEN
  5. IBUPROFEN. [Concomitant]
     Active Substance: IBUPROFEN

REACTIONS (6)
  - Knee arthroplasty [Unknown]
  - Muscle spasms [Unknown]
  - Hospitalisation [Unknown]
  - Arthralgia [Unknown]
  - Arthropathy [Unknown]
  - Wrist surgery [Unknown]

NARRATIVE: CASE EVENT DATE: 20181005
